FAERS Safety Report 4399635-4 (Version None)
Quarter: 2004Q3

REPORT INFORMATION
  Report Type: 
  Country: None (occurrence: None)
  Receive Date: 20040712
  Receipt Date: 20040625
  Transmission Date: 20050211
  Serious: Yes (Other)
  Sender: FDA-Public Use
  Company Number: 04-06-0922

PATIENT
  Age: 43 Day
  Sex: Male

DRUGS (2)
  1. PROGLYCEM [Suspect]
     Indication: HYPERINSULINISM
     Dosage: 17MG.KG-1QD ORAL
     Route: 048
  2. OCTREOTIDE ACETATE [Concomitant]

REACTIONS (8)
  - CARDIAC FAILURE CONGESTIVE [None]
  - DIABETES MELLITUS INADEQUATE CONTROL [None]
  - FLUID RETENTION [None]
  - GENERALISED OEDEMA [None]
  - HEPATOMEGALY [None]
  - PULMONARY HYPERTENSION [None]
  - RENAL FAILURE ACUTE [None]
  - RESPIRATORY FAILURE [None]
